FAERS Safety Report 6398489-4 (Version None)
Quarter: 2009Q4

REPORT INFORMATION
  Report Type: 
  Country: None (occurrence: None)
  Receive Date: 20091013
  Receipt Date: 20091005
  Transmission Date: 20100525
  Serious: Yes (Hospitalization)
  Sender: FDA-Public Use
  Company Number: B0597148A

PATIENT
  Age: 77 Year
  Sex: Female

DRUGS (1)
  1. ALKERAN [Suspect]
     Route: 042

REACTIONS (1)
  - CHRONIC MYELOMONOCYTIC LEUKAEMIA [None]
